FAERS Safety Report 8516720-3 (Version None)
Quarter: 2012Q2

REPORT INFORMATION
  Report Type: 
  Country: None (occurrence: None)
  Receive Date: 20120406
  Receipt Date: 20101221
  Transmission Date: 20120825
  Serious: Yes (Hospitalization)
  Sender: FDA-Public Use
  Company Number: PHHY2010US88204

PATIENT
  Age: 66 Year
  Sex: Male

DRUGS (5)
  1. TASIGNA [Suspect]
     Indication: CHRONIC MYELOID LEUKAEMIA
     Dosage: 300 MG, BID, ORAL : ORAL
     Route: 048
     Dates: start: 20100619, end: 20101008
  2. POTASSIUM CHLORIDE [Concomitant]
  3. ASPIRIN [Concomitant]
  4. PRILOSEC [Concomitant]
  5. BYSTOLIC [Concomitant]

REACTIONS (3)
  - PLEURAL EFFUSION [None]
  - CHEST DISCOMFORT [None]
  - DYSPNOEA [None]
